FAERS Safety Report 5467471-3 (Version None)
Quarter: 2007Q3

REPORT INFORMATION
  Report Type: 
  Country: None (occurrence: None)
  Receive Date: 20070925
  Receipt Date: 20070919
  Transmission Date: 20080115
  Serious: Yes (Other)
  Sender: FDA-Public Use
  Company Number: AU-PFIZER INC-2007078778

PATIENT
  Sex: Male
  Weight: 90 kg

DRUGS (1)
  1. XANAX [Suspect]

REACTIONS (3)
  - CONCUSSION [None]
  - FALL [None]
  - ROAD TRAFFIC ACCIDENT [None]
